FAERS Safety Report 7904451-X (Version None)
Quarter: 2011Q4

REPORT INFORMATION
  Report Type: 
  Country: None (occurrence: None)
  Receive Date: 20111109
  Receipt Date: 20111101
  Transmission Date: 20120403
  Serious: Yes (Other)
  Sender: FDA-Public Use
  Company Number: GB-ABBOTT-11P-167-0861639-00

PATIENT
  Age: 39 Year
  Sex: Male
  Weight: 71 kg

DRUGS (9)
  1. TRUVADA [Suspect]
     Indication: HIV INFECTION
     Dosage: TENOFOVIR DISOPROXIL 245MG/EMTRICITABINE 200MG
     Dates: start: 20090113
  2. PROTON PUMP INHIBITOR (NOT SPECIFIED) [Concomitant]
     Indication: PRODUCT USED FOR UNKNOWN INDICATION
  3. CALCIUM W/VITAMIN D NOS [Concomitant]
     Indication: VITAMIN D DECREASED
  4. TERBINAFINE HCL [Concomitant]
     Indication: ONYCHOMYCOSIS
     Route: 048
  5. REYATAZ [Suspect]
     Indication: HIV INFECTION
     Route: 048
     Dates: start: 20090113, end: 20110726
  6. REYATAZ [Suspect]
     Dates: start: 20110726
  7. RITONAVIR [Suspect]
     Indication: PRODUCT USED FOR UNKNOWN INDICATION
  8. SERTRALINE HYDROCHLORIDE [Concomitant]
     Indication: DEPRESSION
     Route: 048
  9. OMEPRAZOLE [Concomitant]
     Indication: DYSPEPSIA
     Route: 048
     Dates: start: 20110801

REACTIONS (2)
  - VIRAL LOAD INCREASED [None]
  - GLOMERULAR FILTRATION RATE DECREASED [None]
